FAERS Safety Report 6017390-9 (Version None)
Quarter: 2008Q4

REPORT INFORMATION
  Report Type: 
  Country: None (occurrence: None)
  Receive Date: 20081223
  Receipt Date: 20081215
  Transmission Date: 20090506
  Serious: Yes (Other)
  Sender: FDA-Public Use
  Company Number: PHHY2008FR23177

PATIENT
  Sex: Female

DRUGS (5)
  1. ZOMETA [Suspect]
     Indication: BREAST CANCER
     Dosage: UNK
     Route: 042
     Dates: start: 20030101, end: 20060101
  2. NOLVADEX [Concomitant]
     Route: 048
  3. TAXOTERE [Concomitant]
     Route: 048
  4. XELODA [Concomitant]
     Route: 048
  5. AROMASIN [Concomitant]
     Route: 048

REACTIONS (5)
  - DEBRIDEMENT [None]
  - EXCESSIVE GRANULATION TISSUE [None]
  - ORAL PUSTULE [None]
  - OSTEONECROSIS [None]
  - TOOTH EXTRACTION [None]
